FAERS Safety Report 6321664-1 (Version None)
Quarter: 2009Q3

REPORT INFORMATION
  Report Type: 
  Country: None (occurrence: None)
  Receive Date: 20090821
  Receipt Date: 20090821
  Transmission Date: 20100115
  Serious: Yes (Other)
  Sender: FDA-Public Use
  Company Number: None

PATIENT
  Age: 67 Year
  Sex: Female
  Weight: 68.9467 kg

DRUGS (1)
  1. ACTONEL [Suspect]
     Indication: OSTEOPENIA
     Dosage: 1 TAB(150MG) ONCE A MONTH BY MOUTH
     Route: 048
     Dates: start: 20090803

REACTIONS (4)
  - ARTHRALGIA [None]
  - HEADACHE [None]
  - PAIN [None]
  - PYREXIA [None]
